FAERS Safety Report 21596023 (Version 1)
Quarter: 2022Q4

REPORT INFORMATION
  Report Type: Spontaneous
  Country: US (occurrence: US)
  Receive Date: 20221115
  Receipt Date: 20221115
  Transmission Date: 20230113
  Serious: No
  Sender: FDA-Public Use
  Company Number: US-drreddys-SPO/USA/22/0157007

PATIENT
  Age: 29 Year
  Sex: Male

DRUGS (5)
  1. TACROLIMUS [Interacting]
     Active Substance: TACROLIMUS
     Indication: Product used for unknown indication
     Dosage: 4-6 NG/ML
  2. RITONAVIR [Interacting]
     Active Substance: RITONAVIR
     Indication: Antiviral treatment
     Route: 048
  3. PREDNISONE [Concomitant]
     Active Substance: PREDNISONE
     Indication: Product used for unknown indication
  4. NIRMATRELVIR [Concomitant]
     Active Substance: NIRMATRELVIR
     Indication: Antiviral treatment
     Route: 048
  5. MYCOPHENOLATE MOFETIL [Concomitant]
     Active Substance: MYCOPHENOLATE MOFETIL
     Indication: Product used for unknown indication

REACTIONS (3)
  - Drug level increased [Recovering/Resolving]
  - Drug interaction [Recovering/Resolving]
  - Blood creatinine increased [Unknown]
